FAERS Safety Report 4364679-5 (Version None)
Quarter: 2004Q2

REPORT INFORMATION
  Report Type: 
  Country: None (occurrence: None)
  Receive Date: 20040526
  Receipt Date: 20040218
  Transmission Date: 20050107
  Serious: No
  Sender: FDA-Public Use
  Company Number: US-GLAXOSMITHKLINE-A0498744A

PATIENT
  Age: 52 Year
  Sex: Male

DRUGS (4)
  1. FLOLAN [Suspect]
     Dosage: 60.4MCG CONTINUOUS
     Route: 042
     Dates: start: 19991001
  2. MULTI-VITAMIN [Concomitant]
  3. COUMADIN [Concomitant]
  4. OXYGEN [Concomitant]

REACTIONS (2)
  - CORNEAL DISORDER [None]
  - VISUAL DISTURBANCE [None]
